FAERS Safety Report 5676723-3 (Version None)
Quarter: 2008Q1

REPORT INFORMATION
  Report Type: 
  Country: None (occurrence: None)
  Receive Date: 20080318
  Receipt Date: 20080310
  Transmission Date: 20080703
  Serious: Yes (Hospitalization)
  Sender: FDA-Public Use
  Company Number: 025045

PATIENT
  Age: 21 Year
  Sex: Female

DRUGS (9)
  1. METHYLPREDNISOLONE [Suspect]
     Indication: HEADACHE
     Dosage: 200 MG, Q12HR, INTRAVENOUS
     Route: 042
  2. DEXAMETHASONE TAB [Suspect]
     Indication: HEADACHE
     Dosage: 252 MG : TAPE OF 36 MG, OVER 4 DAYS : 36 MG, PER COURSE, 7 COURSES
  3. CORTICOSTEROIDS() [Suspect]
     Indication: ASTHMA
     Dosage: AS NEEDED, INHALANT
     Route: 055
  4. CORTICOSTEROIDS() [Suspect]
     Indication: HYPERSENSITIVITY
     Dosage: AS NEEDED, INHALANT
     Route: 055
  5. CORTICOSTEROIDS [Suspect]
     Dosage: AS NEEDED, TOPICAL
  6. DIHYDROERGOTAMINE MESYLATE [Concomitant]
  7. SUMATRIPTAN SUCCINATE [Concomitant]
  8. NORTRIPTYLINE HCL [Concomitant]
  9. GABAPENTIN [Concomitant]

REACTIONS (8)
  - ASTHMA [None]
  - CLUSTER HEADACHE [None]
  - COAGULATION FACTOR VIII LEVEL INCREASED [None]
  - DEEP VEIN THROMBOSIS [None]
  - HYPERSENSITIVITY [None]
  - MIGRAINE [None]
  - OSTEONECROSIS [None]
  - OSTEOPENIA [None]
